FAERS Safety Report 6071323-8 (Version None)
Quarter: 2009Q1

REPORT INFORMATION
  Report Type: 
  Country: None (occurrence: None)
  Receive Date: 20090205
  Receipt Date: 20090127
  Transmission Date: 20090719
  Serious: Yes (Other)
  Sender: FDA-Public Use
  Company Number: 158855

PATIENT
  Age: 49 Year
  Sex: Female

DRUGS (5)
  1. PACLITAXEL [Suspect]
     Indication: OVARIAN CANCER
  2. CARBOPLATIN [Concomitant]
  3. (NSAID'S) [Concomitant]
  4. ACETAMINOPHEN [Concomitant]
  5. CODEINE SUL TAB [Concomitant]

REACTIONS (7)
  - ARTHRITIS [None]
  - EMOTIONAL DISTRESS [None]
  - NO THERAPEUTIC RESPONSE [None]
  - NORMOCHROMIC NORMOCYTIC ANAEMIA [None]
  - PLATELET COUNT DECREASED [None]
  - PLEURAL EFFUSION [None]
  - SYSTEMIC LUPUS ERYTHEMATOSUS [None]
